FAERS Safety Report 10037487 (Version 2)
Quarter: 2014Q1

REPORT INFORMATION
  Report Type: Spontaneous
  Country: FR (occurrence: FR)
  Receive Date: 20140326
  Receipt Date: 20140326
  Transmission Date: 20141002
  Serious: Yes (Other)
  Sender: FDA-Public Use
  Company Number: FR-ABBVIE-14P-056-1215925-00

PATIENT
  Age: 40 Year
  Sex: Female

DRUGS (4)
  1. VALPROATE SODIUM [Suspect]
     Indication: EPILEPSY
     Route: 048
     Dates: start: 1985, end: 201305
  2. FOLIC ACID [Suspect]
     Indication: PRODUCT USED FOR UNKNOWN INDICATION
     Route: 048
     Dates: start: 20130523
  3. LAMICTAL [Suspect]
     Indication: EPILEPSY
     Route: 048
  4. LAMICTAL [Suspect]
     Dates: start: 201302

REACTIONS (3)
  - Diabetes mellitus [Unknown]
  - Epilepsy [Unknown]
  - Hypertension [Recovering/Resolving]
